FAERS Safety Report 6814661-0 (Version None)
Quarter: 2010Q2

REPORT INFORMATION
  Report Type: 
  Country: None (occurrence: None)
  Receive Date: 20100629
  Receipt Date: 20100617
  Transmission Date: 20101027
  Serious: Yes (Hospitalization)
  Sender: FDA-Public Use
  Company Number: 2010S1000527-001

PATIENT
  Age: 62 Year
  Sex: Female

DRUGS (7)
  1. PITAVASTATIN CALCIUM [Suspect]
     Indication: HYPERCHOLESTEROLAEMIA
     Dosage: 2MG PO
     Route: 048
     Dates: start: 20041130, end: 20071127
  2. ROSUVASTATIN CALCIUM [Concomitant]
  3. PERINDOPRIL ERBUMINE [Concomitant]
  4. TELMISARTAN [Concomitant]
  5. AZELNIDIPINE [Concomitant]
  6. INSULIN HUMAN [Concomitant]
  7. METFORMIN HYDROCHLORIDE [Concomitant]

REACTIONS (5)
  - ABDOMINAL PAIN [None]
  - BLOOD LACTATE DEHYDROGENASE INCREASED [None]
  - HYDRONEPHROSIS [None]
  - URINARY TRACT INFECTION [None]
  - VOMITING [None]
